FAERS Safety Report 20212258 (Version 1)
Quarter: 2021Q4

REPORT INFORMATION
  Report Type: Spontaneous
  Country: US (occurrence: US)
  Receive Date: 20211221
  Receipt Date: 20211221
  Transmission Date: 20220303
  Serious: Yes (Life-Threatening, Hospitalization)
  Sender: FDA-Public Use
  Company Number: US-MYLANLABS-2021M1094967

PATIENT
  Age: 39 Year
  Sex: Male

DRUGS (7)
  1. DUTASTERIDE [Suspect]
     Active Substance: DUTASTERIDE
     Indication: Hormone suppression therapy
     Dosage: 0.5 MILLIGRAM, QD
     Route: 065
  2. DUTASTERIDE [Suspect]
     Active Substance: DUTASTERIDE
     Indication: Dependence
  3. ESTRADIOL [Suspect]
     Active Substance: ESTRADIOL
     Indication: Hormone suppression therapy
     Dosage: 2 MILLIGRAM, QD
     Route: 065
  4. ESTRADIOL [Suspect]
     Active Substance: ESTRADIOL
     Indication: Dependence
  5. RISPERIDONE [Suspect]
     Active Substance: RISPERIDONE
     Indication: Hallucination, auditory
     Dosage: 0.5 MILLIGRAM, BID
     Route: 065
  6. RISPERIDONE [Suspect]
     Active Substance: RISPERIDONE
     Indication: Paranoia
     Dosage: UNK (DOSE INCREASED)
     Route: 065
  7. RISPERIDONE [Suspect]
     Active Substance: RISPERIDONE
     Indication: Perseveration

REACTIONS (6)
  - Drug abuse [Recovered/Resolved]
  - Pulmonary embolism [Unknown]
  - Insomnia [Unknown]
  - Musculoskeletal stiffness [Recovered/Resolved]
  - Hyperhidrosis [Unknown]
  - Hypoxia [Recovered/Resolved]
